FAERS Safety Report 6804104-5 (Version None)
Quarter: 2010Q2

REPORT INFORMATION
  Report Type: 
  Country: None (occurrence: None)
  Receive Date: 20100628
  Receipt Date: 20070301
  Transmission Date: 20101027
  Serious: No
  Sender: FDA-Public Use
  Company Number: US-PFIZER INC-2007000524

PATIENT
  Sex: Male
  Weight: 163.3 kg

DRUGS (5)
  1. SOMAVERT [Suspect]
     Indication: ACROMEGALY
     Dosage: EVERYDAY
     Route: 058
     Dates: start: 20061222
  2. SIMVASTATIN [Concomitant]
  3. LEVOTHROID [Concomitant]
  4. LOSARTAN POTASSIUM [Concomitant]
  5. BENADRYL [Concomitant]

REACTIONS (3)
  - DYSPNOEA [None]
  - INCREASED APPETITE [None]
  - INSOMNIA [None]
